FAERS Safety Report 4950997-6 (Version None)
Quarter: 2006Q1

REPORT INFORMATION
  Report Type: 
  Country: None (occurrence: None)
  Receive Date: 20060315
  Receipt Date: 20060227
  Transmission Date: 20060701
  Serious: Yes (Other)
  Sender: FDA-Public Use
  Company Number: BR200603000524

PATIENT
  Age: 40 Year
  Sex: Male

DRUGS (3)
  1. CIALIS [Suspect]
     Dosage: 20 MG ORAL
     Route: 048
  2. ALCOHOL (ETHANOL) [Concomitant]
  3. COCAINE [Concomitant]

REACTIONS (6)
  - ALCOHOLISM [None]
  - CHORIORETINOPATHY [None]
  - DETACHMENT OF RETINAL PIGMENT EPITHELIUM [None]
  - DRUG ABUSER [None]
  - INTENTIONAL DRUG MISUSE [None]
  - RETINAL DETACHMENT [None]
